FAERS Safety Report 8772044 (Version 1)
Quarter: 2012Q4

REPORT INFORMATION
  Report Type: 
  Country: US (occurrence: US)
  Receive Date: 20120905
  Receipt Date: 20120905
  Transmission Date: 20130627
  Serious: Yes (Life-Threatening, Other)
  Sender: FDA-Public Use
  Company Number: PHEH2012US017245

PATIENT
  Sex: Female

DRUGS (8)
  1. DIOVAN [Suspect]
     Dosage: 2 DF, per day
  2. MORPHINE [Suspect]
     Dates: start: 200804
  3. SECTRAL [Concomitant]
  4. ESPESOR [Concomitant]
  5. MINOXIDIL [Concomitant]
  6. CLONIDINE [Concomitant]
  7. TIZAG [Concomitant]
  8. ESTROTEST [Concomitant]

REACTIONS (5)
  - Coma [Unknown]
  - Diabetes mellitus [Unknown]
  - Blood glucose increased [Unknown]
  - Renal failure [Unknown]
  - Musculoskeletal discomfort [Unknown]
